FAERS Safety Report 13335655 (Version 1)
Quarter: 2017Q1

REPORT INFORMATION
  Report Type: Spontaneous
  Country: US (occurrence: US)
  Receive Date: 20170314
  Receipt Date: 20170314
  Transmission Date: 20170428
  Serious: Yes (Hospitalization)
  Sender: FDA-Public Use
  Company Number: US-DEPOMED, INC.-US-2017DEP000541

PATIENT

DRUGS (1)
  1. NUCYNTA ER [Suspect]
     Active Substance: TAPENTADOL HYDROCHLORIDE
     Indication: BACK PAIN
     Dosage: 75 MG, BID
     Route: 048

REACTIONS (3)
  - Spinal fusion surgery [Recovered/Resolved]
  - Cerebrovascular accident [Recovered/Resolved]
  - Anticoagulation drug level decreased [Recovered/Resolved]

NARRATIVE: CASE EVENT DATE: 2015
